FAERS Safety Report 6145901-1 (Version None)
Quarter: 2009Q2

REPORT INFORMATION
  Report Type: 
  Country: None (occurrence: None)
  Receive Date: 20090407
  Receipt Date: 20090224
  Transmission Date: 20091009
  Serious: No
  Sender: FDA-Public Use
  Company Number: US-BAYER-200840928NA

PATIENT
  Age: 26 Year
  Sex: Female
  Weight: 73 kg

DRUGS (3)
  1. MIRENA [Suspect]
     Indication: CONTRACEPTION
     Dosage: CONTINUOUS
     Route: 015
     Dates: start: 20080520
  2. IBUPROFEN [Concomitant]
     Indication: PAIN
     Dosage: UNIT DOSE: 800 MG
     Route: 048
  3. ULTRAM [Concomitant]
     Indication: PAIN

REACTIONS (6)
  - ANOREXIA [None]
  - BREAST TENDERNESS [None]
  - FEELING ABNORMAL [None]
  - GENITAL HAEMORRHAGE [None]
  - NAUSEA [None]
  - VOMITING IN PREGNANCY [None]
